FAERS Safety Report 13193584 (Version 1)
Quarter: 2017Q1

REPORT INFORMATION
  Report Type: Report from Study
  Country: None (occurrence: FR)
  Receive Date: 20170207
  Receipt Date: 20170207
  Transmission Date: 20170428
  Serious: Yes (Hospitalization)
  Sender: FDA-Public Use
  Company Number: FR-ABBVIE-17P-056-1837205-00

PATIENT
  Age: 68 Year
  Sex: Male
  Weight: 84 kg

DRUGS (12)
  1. ESIDREX [Concomitant]
     Active Substance: HYDROCHLOROTHIAZIDE
     Indication: HYPERTENSION
     Route: 048
  2. LERCANIDIPINE [Concomitant]
     Active Substance: LERCANIDIPINE
     Indication: HYPERTENSION
     Route: 048
  3. VENETOCLAX [Suspect]
     Active Substance: VENETOCLAX
     Dosage: LAST DOSE PRIOR TO THE ONSET OF SAE:10-JAN-2017
     Route: 048
     Dates: start: 20170109, end: 20170110
  4. VENETOCLAX [Suspect]
     Active Substance: VENETOCLAX
     Indication: CHRONIC LYMPHOCYTIC LEUKAEMIA
     Dosage: LAST DOSE PRIOR TO THE ONSET OF SAE:10-JAN-2017
     Route: 048
     Dates: start: 20170106, end: 20170108
  5. GA101 [Suspect]
     Active Substance: OBINUTUZUMAB
     Indication: CHRONIC LYMPHOCYTIC LEUKAEMIA
     Dosage: MOST RECENT DOSE PRIOR TO SAE ONSET :29 NOV 2016
     Route: 042
     Dates: start: 20161115
  6. ARIXTRA [Concomitant]
     Active Substance: FONDAPARINUX SODIUM
     Indication: THROMBOSIS
     Route: 058
     Dates: start: 20161220
  7. CLARITINE [Concomitant]
     Active Substance: LORATADINE
     Indication: DERMATITIS ALLERGIC
     Route: 048
     Dates: start: 20161207
  8. DOLIPRANE [Concomitant]
     Active Substance: ACETAMINOPHEN
     Indication: PAIN
     Dosage: MAXIMUM OF 4 PER DAY
     Route: 048
  9. BENDAMUSTINE [Suspect]
     Active Substance: BENDAMUSTINE
     Indication: CHRONIC LYMPHOCYTIC LEUKAEMIA
     Dosage: MOST RECENT DOSE PRIOR TO SAE ONSET 17 NOV 2016
     Route: 042
     Dates: start: 20161116
  10. FOLINORAL [Concomitant]
     Active Substance: LEUCOVORIN CALCIUM
     Indication: ANAEMIA
     Route: 048
     Dates: start: 20161217
  11. XANAX [Concomitant]
     Active Substance: ALPRAZOLAM
     Indication: ANXIETY
     Route: 048
     Dates: start: 20161117
  12. AUGMENTIN [Concomitant]
     Active Substance: AMOXICILLIN\CLAVULANATE POTASSIUM
     Indication: INFECTION
     Route: 048
     Dates: start: 20161223

REACTIONS (2)
  - Chills [Recovered/Resolved]
  - Pyrexia [Recovered/Resolved]

NARRATIVE: CASE EVENT DATE: 20170110
